FAERS Safety Report 9419358 (Version 1)
Quarter: 2013Q3

REPORT INFORMATION
  Report Type: Spontaneous
  Country: US (occurrence: US)
  Receive Date: 20130725
  Receipt Date: 20130725
  Transmission Date: 20140515
  Serious: No
  Sender: FDA-Public Use
  Company Number: US-GLAXOSMITHKLINE-A1021451A

PATIENT
  Sex: Female

DRUGS (4)
  1. LAMICTAL [Suspect]
     Indication: CONVULSION
     Dosage: 250MG PER DAY
     Route: 048
     Dates: start: 201209, end: 201301
  2. LAMOTRIGINE [Suspect]
     Indication: CONVULSION
     Dosage: 300MG TWICE PER DAY
     Route: 048
     Dates: start: 20130421
  3. PAXIL CR [Concomitant]
  4. XANAX [Concomitant]

REACTIONS (7)
  - Anxiety [Unknown]
  - Confusional state [Unknown]
  - Coordination abnormal [Unknown]
  - Memory impairment [Unknown]
  - Fatigue [Unknown]
  - Crying [Unknown]
  - Somnolence [Unknown]
